FAERS Safety Report 6570287-8 (Version None)
Quarter: 2010Q1

REPORT INFORMATION
  Report Type: 
  Country: None (occurrence: None)
  Receive Date: 20100204
  Receipt Date: 20100125
  Transmission Date: 20100710
  Serious: Yes (Hospitalization)
  Sender: FDA-Public Use
  Company Number: DE-PFIZER INC-2010009468

PATIENT
  Age: 75 Year
  Sex: Male
  Weight: 71 kg

DRUGS (12)
  1. CLINDAMYCIN HCL [Suspect]
     Indication: LOCALISED INFECTION
     Dosage: 600 MG, 3X/DAY
     Route: 048
     Dates: start: 20090731, end: 20090802
  2. OMEPRAZOL [Interacting]
     Indication: HELICOBACTER GASTRITIS
     Dosage: 40 MG, 1X/DAY
     Route: 048
     Dates: start: 20060901
  3. FALITHROM [Concomitant]
     Indication: TACHYARRHYTHMIA
     Dosage: DOSE AFTER QUICK'S VALUE
     Route: 048
     Dates: start: 20061001, end: 20090827
  4. ACETYLSALICYLIC ACID [Concomitant]
     Indication: CORONARY ARTERY DISEASE
     Dosage: 100 MG, 1X/DAY
     Route: 048
     Dates: start: 20090201
  5. DIGITOXIN [Concomitant]
     Indication: ATRIAL FIBRILLATION
     Dosage: 0.07 MG, 1X/DAY
     Route: 048
     Dates: start: 20061001
  6. BISOPROLOL [Concomitant]
     Indication: HYPERTENSION
     Dosage: 5 MG, 1X/DAY
     Route: 048
     Dates: start: 20090201
  7. DIOVANE [Concomitant]
     Indication: HYPERTENSION
     Dosage: 80 MG, 1X/DAY
     Route: 048
     Dates: start: 20060901
  8. TORASEMIDE [Concomitant]
     Indication: RENAL FAILURE CHRONIC
     Dosage: 5 MG, 1X/DAY
     Route: 048
     Dates: start: 20090201, end: 20090827
  9. ALLOPURINOL [Concomitant]
     Indication: GOUTY ARTHRITIS
     Dosage: 100 MG, 1X/DAY
     Route: 048
     Dates: start: 20090701
  10. SIMVASTATIN [Concomitant]
     Indication: CORONARY ARTERY DISEASE
     Dosage: 40 MG, 1X/DAY
     Route: 048
     Dates: start: 20090201
  11. TREVILOR [Concomitant]
     Indication: DEPRESSION
     Dosage: 1X150 MG, 1X75 MG
     Route: 048
     Dates: start: 20060901
  12. COLCHYSAT [Concomitant]
     Indication: GOUTY ARTHRITIS
     Dosage: 0.5 MG, 3X/DAY
     Route: 048
     Dates: start: 20090731, end: 20090802

REACTIONS (2)
  - CLOSTRIDIUM DIFFICILE COLITIS [None]
  - DRUG INTERACTION [None]
